FAERS Safety Report 5846176-0 (Version None)
Quarter: 2008Q3

REPORT INFORMATION
  Report Type: 
  Country: None (occurrence: None)
  Receive Date: 20080814
  Receipt Date: 20080804
  Transmission Date: 20090109
  Serious: Yes (Death)
  Sender: FDA-Public Use
  Company Number: JP-ABBOTT-07P-087-0421098-00

PATIENT
  Age: 80 Year
  Sex: Male

DRUGS (2)
  1. LEUPROLIDE ACETATE [Suspect]
     Indication: PROSTATE CANCER STAGE II
     Route: 058
     Dates: start: 20060920, end: 20070530
  2. BICALUTAMIDE [Concomitant]
     Indication: PROSTATE CANCER STAGE II
     Route: 048
     Dates: start: 20060920, end: 20070530

REACTIONS (5)
  - ATRIAL FIBRILLATION [None]
  - CEREBRAL INFARCTION [None]
  - CEREBRAL ISCHAEMIA [None]
  - EMBOLIC STROKE [None]
  - PULMONARY INFARCTION [None]
